FAERS Safety Report 24352321 (Version 3)
Quarter: 2025Q3

REPORT INFORMATION
  Report Type: Spontaneous
  Country: US (occurrence: US)
  Receive Date: 20240923
  Receipt Date: 20250909
  Transmission Date: 20251021
  Serious: Yes (Hospitalization, Other)
  Sender: DOMPE FARMACEUTICI
  Company Number: US-FARMAPROD-202408-2898

PATIENT
  Sex: Female
  Weight: 56.7 kg

DRUGS (12)
  1. OXERVATE [Suspect]
     Active Substance: CENEGERMIN-BKBJ
     Indication: Neurotrophic keratopathy
     Route: 047
     Dates: start: 20240716, end: 202409
  2. OXERVATE [Suspect]
     Active Substance: CENEGERMIN-BKBJ
  3. OXERVATE [Suspect]
     Active Substance: CENEGERMIN-BKBJ
  4. OXERVATE [Suspect]
     Active Substance: CENEGERMIN-BKBJ
     Route: 047
     Dates: start: 20241003
  5. OXERVATE [Suspect]
     Active Substance: CENEGERMIN-BKBJ
  6. ERYTHROMYCIN [Concomitant]
     Active Substance: ERYTHROMYCIN
  7. MOXIFLOXACIN [Concomitant]
     Active Substance: MOXIFLOXACIN
  8. GABAPENTIN [Concomitant]
     Active Substance: GABAPENTIN
  9. DIGOXIN [Concomitant]
     Active Substance: DIGOXIN
  10. CARVEDILOL [Concomitant]
     Active Substance: CARVEDILOL
  11. ASPIRIN [Concomitant]
     Active Substance: ASPIRIN
  12. FLONASE ALLERGY RELIEF [Concomitant]
     Active Substance: FLUTICASONE PROPIONATE

REACTIONS (9)
  - Hospitalisation [Not Recovered/Not Resolved]
  - Pneumonia [Unknown]
  - Product administration error [Recovered/Resolved]
  - Product dose omission issue [Not Recovered/Not Resolved]
  - Eye swelling [Not Recovered/Not Resolved]
  - Eye pain [Not Recovered/Not Resolved]
  - Therapy interrupted [Unknown]
  - Intentional product misuse [Unknown]
  - Photophobia [Unknown]
